FAERS Safety Report 13349710 (Version 1)
Quarter: 2017Q1

REPORT INFORMATION
  Report Type: Spontaneous
  Country: JP (occurrence: JP)
  Receive Date: 20170320
  Receipt Date: 20170320
  Transmission Date: 20170429
  Serious: Yes (Hospitalization)
  Sender: FDA-Public Use
  Company Number: JP-STRIDES ARCOLAB LIMITED-2017SP004820

PATIENT

DRUGS (1)
  1. IMIQUIMOD. [Suspect]
     Active Substance: IMIQUIMOD
     Indication: ACTINIC KERATOSIS
     Dosage: 250 MG, QOD
     Route: 061

REACTIONS (3)
  - Skin exfoliation [Recovered/Resolved]
  - Erythrodermic psoriasis [Recovered/Resolved]
  - Erythema [Recovered/Resolved]
